FAERS Safety Report 7668351-5 (Version None)
Quarter: 2011Q3

REPORT INFORMATION
  Report Type: 
  Country: None (occurrence: None)
  Receive Date: 20110808
  Receipt Date: 20110803
  Transmission Date: 20111222
  Serious: Yes (Other)
  Sender: FDA-Public Use
  Company Number: CA-PFIZER INC-2011165635

PATIENT
  Age: 75 Year
  Sex: Male

DRUGS (3)
  1. SIMVASTATIN [Concomitant]
     Indication: HIGH DENSITY LIPOPROTEIN DECREASED
     Dosage: 20 MG, 1X/DAY
     Route: 048
     Dates: start: 20080701
  2. XALATAN [Suspect]
     Indication: GLAUCOMA
     Dosage: 1 DROP PER EYE, 1X/DAY
     Route: 047
     Dates: start: 20080701
  3. METOPROLOL [Concomitant]
     Indication: HYPERTENSION
     Dosage: 25MG, 2 PILLS/DAY
     Route: 048
     Dates: start: 20080701

REACTIONS (2)
  - MOBILITY DECREASED [None]
  - JOINT DISLOCATION [None]
